FAERS Safety Report 7909540-1 (Version None)
Quarter: 2011Q4

REPORT INFORMATION
  Report Type: 
  Country: None (occurrence: None)
  Receive Date: 20111111
  Receipt Date: 20111104
  Transmission Date: 20120403
  Serious: Yes (Hospitalization)
  Sender: FDA-Public Use
  Company Number: JP-JNJFOC-20110706188

PATIENT
  Sex: Male
  Weight: 43 kg

DRUGS (8)
  1. BROTIZOLAM [Concomitant]
     Indication: PRODUCT USED FOR UNKNOWN INDICATION
     Route: 048
     Dates: start: 20110517, end: 20111020
  2. GALANTAMINE HYDROBROMIDE [Suspect]
     Indication: ATTENTION DEFICIT/HYPERACTIVITY DISORDER
     Route: 048
     Dates: start: 20110519, end: 20110622
  3. RISPERDAL [Interacting]
     Indication: PRODUCT USED FOR UNKNOWN INDICATION
     Route: 048
     Dates: start: 20110519, end: 20110703
  4. RISPERDAL [Interacting]
     Route: 048
     Dates: start: 20110517, end: 20110703
  5. YOKUKAN-SAN [Concomitant]
     Indication: PRODUCT USED FOR UNKNOWN INDICATION
     Route: 048
     Dates: start: 20110605, end: 20111010
  6. GALANTAMINE HYDROBROMIDE [Suspect]
     Route: 048
     Dates: start: 20110623, end: 20110624
  7. GALANTAMINE HYDROBROMIDE [Suspect]
     Indication: DEMENTIA ALZHEIMER'S TYPE
     Route: 048
     Dates: start: 20110623, end: 20110624
  8. GALANTAMINE HYDROBROMIDE [Suspect]
     Route: 048
     Dates: start: 20110519, end: 20110622

REACTIONS (7)
  - EXTRAPYRAMIDAL DISORDER [None]
  - INCORRECT DOSE ADMINISTERED [None]
  - ANGER [None]
  - DRUG INTERACTION [None]
  - TREMOR [None]
  - SALIVARY HYPERSECRETION [None]
  - COMMUNICATION DISORDER [None]
